FAERS Safety Report 10187094 (Version 2)
Quarter: 2014Q2

REPORT INFORMATION
  Report Type: Spontaneous
  Country: GB (occurrence: GB)
  Receive Date: 20140522
  Receipt Date: 20140522
  Transmission Date: 20141212
  Serious: Yes (Other)
  Sender: FDA-Public Use
  Company Number: GB-RANBAXY-2014RR-81304

PATIENT
  Age: 26 Year
  Sex: Male

DRUGS (1)
  1. GABAPENTIN [Suspect]
     Indication: PRODUCT USED FOR UNKNOWN INDICATION
     Dosage: 1600 MG, SINGLE
     Route: 048

REACTIONS (2)
  - Dystonia [Recovered/Resolved]
  - Intentional product misuse [Recovered/Resolved]
